FAERS Safety Report 21102823 (Version 1)
Quarter: 2022Q3

REPORT INFORMATION
  Report Type: Spontaneous
  Country: US (occurrence: US)
  Receive Date: 20220720
  Receipt Date: 20220720
  Transmission Date: 20221026
  Serious: No
  Sender: FDA-Public Use
  Company Number: US-BRISTOL-MYERS SQUIBB COMPANY-2022-071084

PATIENT
  Age: 65 Year
  Sex: Female

DRUGS (1)
  1. MAVACAMTEN [Suspect]
     Active Substance: MAVACAMTEN
     Indication: Product used for unknown indication
     Route: 065
     Dates: start: 20220626

REACTIONS (5)
  - Dyspnoea [Unknown]
  - Chest pain [Unknown]
  - Heart rate irregular [Unknown]
  - Palpitations [Unknown]
  - Insomnia [Unknown]

NARRATIVE: CASE EVENT DATE: 20220626
